FAERS Safety Report 8455886-0 (Version None)
Quarter: 2012Q2

REPORT INFORMATION
  Report Type: 
  Country: None (occurrence: None)
  Receive Date: 20120614
  Receipt Date: 20120605
  Transmission Date: 20120825
  Serious: Yes (Hospitalization)
  Sender: FDA-Public Use
  Company Number: 2012SP021353

PATIENT
  Age: 28 Year
  Sex: Female
  Weight: 74.8435 kg

DRUGS (17)
  1. ADVAIR DISKUS 100/50 [Concomitant]
  2. TEGRETOL [Concomitant]
  3. INSULIN [Concomitant]
  4. APIDRA [Concomitant]
  5. BYETTA [Concomitant]
  6. LISINOPRIL [Concomitant]
  7. IMPLANON [Suspect]
     Indication: CONTRACEPTION
     Dosage: SBDE
     Route: 059
     Dates: start: 20100920
  8. VIMPAT [Concomitant]
  9. METFORMIN HCL [Concomitant]
  10. ASPIRIN [Concomitant]
  11. GLUCAGON [Concomitant]
  12. DILANTIN [Concomitant]
  13. NORPACE [Concomitant]
  14. ALBUTEROL SULFATE [Concomitant]
  15. KEPPRA [Concomitant]
  16. GLIPIZIDE [Concomitant]
  17. PROAIR HFA [Concomitant]

REACTIONS (6)
  - AMMONIA INCREASED [None]
  - HEADACHE [None]
  - BLOOD PRESSURE DECREASED [None]
  - LOSS OF CONSCIOUSNESS [None]
  - MENTAL STATUS CHANGES [None]
  - DIZZINESS [None]
